FAERS Safety Report 6239897-1 (Version None)
Quarter: 2009Q2

REPORT INFORMATION
  Report Type: 
  Country: None (occurrence: None)
  Receive Date: 20090623
  Receipt Date: 20090616
  Transmission Date: 20091009
  Serious: Yes (Life-Threatening, Other)
  Sender: FDA-Public Use
  Company Number: US-ELI_LILLY_AND_COMPANY-US200705004470

PATIENT
  Sex: Female
  Weight: 113.38 kg

DRUGS (11)
  1. BYETTA [Suspect]
     Indication: TYPE 2 DIABETES MELLITUS
     Dosage: 5 UG, 2/D
     Route: 058
     Dates: start: 20051001, end: 20051101
  2. BYETTA [Suspect]
     Dosage: 10 UG, 2/D
     Dates: start: 20051101, end: 20060101
  3. BYETTA [Suspect]
     Dosage: 5 UG, 2/D
     Route: 058
     Dates: start: 20070101, end: 20070510
  4. BYETTA [Suspect]
     Dosage: 5 UG, EACH MORNING
     Route: 058
     Dates: start: 20070511, end: 20070513
  5. METFORMIN HCL [Concomitant]
     Indication: TYPE 2 DIABETES MELLITUS
     Dosage: 1000 MG, 2/D
     Route: 048
     Dates: end: 20061001
  6. METFORMIN HCL [Concomitant]
     Dosage: 1000 MG, 2/D
     Route: 048
     Dates: start: 20070501
  7. METFORMIN HCL [Concomitant]
     Dosage: 2000 MG, 2/D
  8. GLIPIZIDE [Concomitant]
     Indication: DIABETES MELLITUS
  9. COZAAR [Concomitant]
     Indication: TYPE 2 DIABETES MELLITUS
     Dosage: 50 MG, DAILY (1/D)
     Route: 048
     Dates: end: 20061001
  10. COZAAR [Concomitant]
     Dosage: 50 MG, DAILY (1/D)
     Route: 048
     Dates: start: 20070501
  11. BENICAR [Concomitant]

REACTIONS (8)
  - ANGIOEDEMA [None]
  - ASTHMA [None]
  - BLOOD GLUCOSE INCREASED [None]
  - INJECTION SITE URTICARIA [None]
  - LARYNGEAL OEDEMA [None]
  - NAUSEA [None]
  - URTICARIA [None]
  - WEIGHT DECREASED [None]
